FAERS Safety Report 13948364 (Version 1)
Quarter: 2017Q3

REPORT INFORMATION
  Report Type: Spontaneous
  Country: US (occurrence: None)
  Receive Date: 20170907
  Receipt Date: 20170907
  Transmission Date: 20171128
  Serious: Yes (Hospitalization)
  Sender: FDA-Public Use
  Company Number: None

PATIENT
  Sex: Female
  Weight: 60.78 kg

DRUGS (2)
  1. FORTEO [Suspect]
     Active Substance: TERIPARATIDE
     Indication: OSTEOPOROSIS
     Route: 058
     Dates: start: 201603
  2. FORTEO [Suspect]
     Active Substance: TERIPARATIDE
     Indication: ADVERSE EVENT
     Route: 058
     Dates: start: 201603

REACTIONS (1)
  - Scoliosis surgery [None]
